FAERS Safety Report 8505827-2 (Version None)
Quarter: 2012Q2

REPORT INFORMATION
  Report Type: 
  Country: None (occurrence: None)
  Receive Date: 20120629
  Receipt Date: 20120101
  Transmission Date: 20120825
  Serious: No
  Sender: FDA-Public Use
  Company Number: TR-ALCON-1192757

PATIENT
  Age: 37 Year
  Sex: Female

DRUGS (1)
  1. BETAXOLOL HYDROCHLORIDE [Suspect]
     Indication: GLAUCOMA
     Dosage: UNSPECIFIED UNIT, UNSPECIFIED INTERVAL, OPHTHALMIC
     Route: 047

REACTIONS (12)
  - COMMUNICATION DISORDER [None]
  - LISTLESS [None]
  - DISTURBANCE IN ATTENTION [None]
  - IMPAIRED WORK ABILITY [None]
  - DEPRESSION [None]
  - HYPERSOMNIA [None]
  - ANHEDONIA [None]
  - DEPRESSED MOOD [None]
  - SOCIAL AVOIDANT BEHAVIOUR [None]
  - FATIGUE [None]
  - ACTIVITIES OF DAILY LIVING IMPAIRED [None]
  - DYSKINESIA [None]
